FAERS Safety Report 7292781-7 (Version None)
Quarter: 2011Q1

REPORT INFORMATION
  Report Type: 
  Country: None (occurrence: None)
  Receive Date: 20110210
  Receipt Date: 20110210
  Transmission Date: 20110831
  Serious: Yes (Life-Threatening, Disabling)
  Sender: FDA-Public Use
  Company Number: None

PATIENT
  Age: 25 Year
  Sex: Female
  Weight: 74.8435 kg

DRUGS (1)
  1. MIRENA [Suspect]
     Indication: CONTRACEPTION
     Dosage: 20MCG DAILY INTRA-UTERINE
     Route: 015
     Dates: start: 20080914, end: 20110114

REACTIONS (6)
  - PREGNANCY WITH CONTRACEPTIVE DEVICE [None]
  - ECTOPIC PREGNANCY [None]
  - ECONOMIC PROBLEM [None]
  - DRUG EXPOSURE DURING PREGNANCY [None]
  - DEVICE DISLOCATION [None]
  - HAEMORRHAGE [None]
